FAERS Safety Report 17005755 (Version 4)
Quarter: 2019Q4

REPORT INFORMATION
  Report Type: Spontaneous
  Country: US (occurrence: US)
  Receive Date: 20191107
  Receipt Date: 20191127
  Transmission Date: 20200122
  Serious: Yes (Hospitalization)
  Sender: FDA-Public Use
  Company Number: US-PFIZER INC-2019476312

PATIENT
  Age: 61 Year
  Sex: Male

DRUGS (2)
  1. LEVOFLOXACIN. [Suspect]
     Active Substance: LEVOFLOXACIN
     Dosage: 750 MG, ALTERNATE DAY
  2. LEVOFLOXACIN. [Suspect]
     Active Substance: LEVOFLOXACIN
     Indication: ABSCESS LIMB
     Dosage: 750 MG, 1X/DAY

REACTIONS (4)
  - Intentional product misuse [Unknown]
  - Myoclonus [Recovered/Resolved]
  - Accidental overdose [Unknown]
  - Off label use [Unknown]
